FAERS Safety Report 19786259 (Version 1)
Quarter: 2021Q3

REPORT INFORMATION
  Report Type: Spontaneous
  Country: CN (occurrence: CN)
  Receive Date: 20210903
  Receipt Date: 20210903
  Transmission Date: 20211014
  Serious: Yes (Other)
  Sender: FDA-Public Use
  Company Number: CN-ELI_LILLY_AND_COMPANY-CN202108011939

PATIENT
  Age: 58 Year
  Sex: Female
  Weight: 57 kg

DRUGS (6)
  1. SINTILIMAB. [Suspect]
     Active Substance: SINTILIMAB
     Indication: PANCREATIC NEOPLASM
     Dosage: 200 MG, SINGLE
     Route: 041
     Dates: start: 20210714, end: 20210714
  2. LI PU SU [Suspect]
     Active Substance: PACLITAXEL
     Indication: PANCREATIC NEOPLASM
     Dosage: 200 MG, SINGLE
     Route: 041
     Dates: start: 20210714, end: 20210814
  3. SODIUM CHLORIDE. [Concomitant]
     Active Substance: SODIUM CHLORIDE
     Dosage: 100 ML, SINGLE
     Route: 041
     Dates: start: 20210714, end: 20210714
  4. SODIUM CHLORIDE. [Concomitant]
     Active Substance: SODIUM CHLORIDE
     Dosage: 100 ML, SINGLE
     Route: 041
     Dates: start: 20210714, end: 20210714
  5. GEMZAR [Suspect]
     Active Substance: GEMCITABINE HYDROCHLORIDE
     Indication: PANCREATIC NEOPLASM
     Dosage: 1600 MG, SINGLE
     Route: 041
     Dates: start: 20210714, end: 20210714
  6. SODIUM CHLORIDE. [Concomitant]
     Active Substance: SODIUM CHLORIDE
     Indication: MEDICATION DILUTION
     Dosage: 100 ML, SINGLE
     Route: 041
     Dates: start: 20210714, end: 20210714

REACTIONS (3)
  - Aspartate aminotransferase increased [Recovering/Resolving]
  - Alanine aminotransferase increased [Recovering/Resolving]
  - Gamma-glutamyltransferase increased [Recovering/Resolving]

NARRATIVE: CASE EVENT DATE: 20210802
